FAERS Safety Report 14665281 (Version 1)
Quarter: 2018Q1

REPORT INFORMATION
  Report Type: Spontaneous
  Country: US (occurrence: US)
  Receive Date: 20180320
  Receipt Date: 20180320
  Transmission Date: 20180509
  Serious: No
  Sender: FDA-Public Use
  Company Number: None

PATIENT
  Sex: Male
  Weight: 80.74 kg

DRUGS (1)
  1. GENERIC BUPRENORPHINE/NALOXONE [Suspect]
     Active Substance: BUPRENORPHINE HYDROCHLORIDE\NALOXONE HYDROCHLORIDE
     Indication: DRUG DEPENDENCE
     Dosage: DOSE 8MG/2MG
     Route: 060
     Dates: start: 20170802, end: 20170830

REACTIONS (5)
  - Withdrawal syndrome [None]
  - Mental disorder [None]
  - Anxiety [None]
  - Drug ineffective [None]
  - Product substitution issue [None]
